FAERS Safety Report 12854131 (Version 1)
Quarter: 2016Q4

REPORT INFORMATION
  Report Type: Spontaneous
  Country: US (occurrence: US)
  Receive Date: 20161017
  Receipt Date: 20161017
  Transmission Date: 20170207
  Serious: Yes (Hospitalization, Other)
  Sender: FDA-Public Use
  Company Number: US-BIOCOMPATIBLES UK LTD-BTG01027

PATIENT

DRUGS (1)
  1. CROFAB [Suspect]
     Active Substance: CROTALIDAE POLYVALENT IMMUNE FAB (OVINE)
     Indication: SNAKE BITE
     Dosage: UNK
     Dates: start: 20151126

REACTIONS (6)
  - Coagulopathy [Recovered/Resolved]
  - Disease recurrence [Recovered/Resolved]
  - Skin discolouration [Unknown]
  - Anaemia [Recovered/Resolved]
  - Contusion [Unknown]
  - Joint swelling [Unknown]

NARRATIVE: CASE EVENT DATE: 201512
